FAERS Safety Report 16917589 (Version 1)
Quarter: 2019Q4

REPORT INFORMATION
  Report Type: Spontaneous
  Country: US (occurrence: US)
  Receive Date: 20191015
  Receipt Date: 20191015
  Transmission Date: 20200122
  Serious: Yes (Death, Congenital Anomaly, Other)
  Sender: FDA-Public Use
  Company Number: US-ACCORD-157516

PATIENT
  Sex: Male

DRUGS (2)
  1. METHOTREXATE. [Suspect]
     Active Substance: METHOTREXATE
     Indication: ABORTION INDUCED
     Dosage: 75 MG
     Route: 064
  2. MISOPROSTOL. [Suspect]
     Active Substance: MISOPROSTOL
     Indication: ABORTION INDUCED
     Route: 064

REACTIONS (16)
  - Limb malformation [Unknown]
  - Clinodactyly [Unknown]
  - Craniofacial deformity [Unknown]
  - Anencephaly [Unknown]
  - Pneumonia [Fatal]
  - Foetal exposure during pregnancy [Unknown]
  - Low set ears [Unknown]
  - Cryptorchism [Fatal]
  - Pulmonary hypertension [Unknown]
  - Myocardial fibrosis [Fatal]
  - Off label use [Unknown]
  - Micrognathia [Unknown]
  - Cleft palate [Unknown]
  - Pulmonary hypoplasia [Fatal]
  - Syndactyly [Unknown]
  - Abnormal palmar/plantar creases [Unknown]
